FAERS Safety Report 5115713-6 (Version None)
Quarter: 2006Q3

REPORT INFORMATION
  Report Type: 
  Country: None (occurrence: None)
  Receive Date: 20060927
  Receipt Date: 20060502
  Transmission Date: 20061208
  Serious: Yes (Hospitalization)
  Sender: FDA-Public Use
  Company Number: BE-ROCHE-447209

PATIENT
  Age: 56 Year
  Sex: Female

DRUGS (11)
  1. CELLCEPT [Suspect]
     Indication: EATON-LAMBERT SYNDROME
     Route: 048
     Dates: start: 20060115, end: 20060309
  2. MEDROL [Concomitant]
     Dosage: INDICATION REPORTED AS IDEM.
     Route: 048
     Dates: start: 20051031
  3. ZANTAC [Concomitant]
     Route: 048
  4. GUANIDINE [Concomitant]
     Route: 048
     Dates: start: 19880615
  5. MAREVAN [Concomitant]
  6. CACO3 [Concomitant]
  7. ISOPTIN [Concomitant]
  8. D-CURE [Concomitant]
  9. ELTHYRONE [Concomitant]
  10. BEFACT FORTE [Concomitant]
  11. FOLIC ACID [Concomitant]

REACTIONS (20)
  - ACUTE ABDOMEN [None]
  - ASCITES [None]
  - BACTERIAL INFECTION [None]
  - BLOOD CREATINE INCREASED [None]
  - BLOOD CREATININE INCREASED [None]
  - CELLULITIS [None]
  - COLITIS [None]
  - CONDITION AGGRAVATED [None]
  - DIPLOPIA [None]
  - DIVERTICULITIS [None]
  - EATON-LAMBERT SYNDROME [None]
  - GASTRITIS HAEMORRHAGIC [None]
  - GENERAL PHYSICAL HEALTH DETERIORATION [None]
  - HIATUS HERNIA [None]
  - LARGE INTESTINAL ULCER [None]
  - MENTAL DISORDER [None]
  - OESOPHAGITIS [None]
  - PANNICULITIS [None]
  - RESPIRATORY FAILURE [None]
  - WOUND [None]
